FAERS Safety Report 12286228 (Version 1)
Quarter: 2016Q2

REPORT INFORMATION
  Report Type: Spontaneous
  Country: US (occurrence: US)
  Receive Date: 20160420
  Receipt Date: 20160420
  Transmission Date: 20160815
  Serious: No
  Sender: FDA-Public Use
  Company Number: US-PFIZER INC-2016182270

PATIENT
  Sex: Female

DRUGS (1)
  1. LYRICA [Suspect]
     Active Substance: PREGABALIN
     Indication: FIBROMYALGIA
     Dosage: UNK

REACTIONS (7)
  - Activities of daily living impaired [Unknown]
  - Dysstasia [Unknown]
  - Gait disturbance [Unknown]
  - Pain [Unknown]
  - Depressed mood [Unknown]
  - Feeling of despair [Unknown]
  - Drug effect incomplete [Unknown]
